FAERS Safety Report 22181066 (Version 1)
Quarter: 2023Q2

REPORT INFORMATION
  Report Type: Spontaneous
  Country: ES (occurrence: None)
  Receive Date: 20230406
  Receipt Date: 20230406
  Transmission Date: 20230722
  Serious: Yes (Other)
  Sender: FDA-Public Use
  Company Number: 2023A071191

PATIENT
  Age: 89 Year
  Sex: Male

DRUGS (2)
  1. OMEPRAZOLE [Suspect]
     Active Substance: OMEPRAZOLE
     Indication: Prophylaxis
     Dosage: 20 MG EVERY 24H
     Route: 048
     Dates: start: 20180531, end: 20230308
  2. ACENOCOUMAROL [Concomitant]
     Active Substance: ACENOCOUMAROL
     Dosage: OVERDOSE OF ACENOCOUMAROL

REACTIONS (3)
  - Hypomagnesaemia [Recovered/Resolved]
  - Primary hypoparathyroidism [Unknown]
  - Head injury [Unknown]

NARRATIVE: CASE EVENT DATE: 20230210
